FAERS Safety Report 9312408 (Version 1)
Quarter: 2013Q2

REPORT INFORMATION
  Report Type: Spontaneous
  Country: US (occurrence: US)
  Receive Date: 20130528
  Receipt Date: 20130528
  Transmission Date: 20140414
  Serious: No
  Sender: FDA-Public Use
  Company Number: US-BRISTOL-MYERS SQUIBB COMPANY-18728220

PATIENT
  Age: 40 Year
  Sex: Male

DRUGS (5)
  1. KOMBIGLYZE XR [Suspect]
  2. METFORMIN HCL [Suspect]
  3. AMARYL [Concomitant]
  4. WELCHOL [Concomitant]
  5. INSULIN [Concomitant]

REACTIONS (4)
  - Joint swelling [Unknown]
  - Pneumaturia [Unknown]
  - Diarrhoea [Unknown]
  - Protein urine present [Unknown]
